FAERS Safety Report 7341854-9 (Version None)
Quarter: 2011Q1

REPORT INFORMATION
  Report Type: 
  Country: None (occurrence: None)
  Receive Date: 20110309
  Receipt Date: 20110302
  Transmission Date: 20110831
  Serious: Yes (Hospitalization)
  Sender: FDA-Public Use
  Company Number: DE-CEPHALON-2011001070

PATIENT
  Sex: Female
  Weight: 70 kg

DRUGS (2)
  1. BENDAMUSTINE HCL [Suspect]
     Indication: B-CELL LYMPHOMA
     Route: 041
     Dates: start: 20101012, end: 20110106
  2. RITUXIMAB [Suspect]
     Indication: LYMPHOMA

REACTIONS (2)
  - CAMPYLOBACTER GASTROENTERITIS [None]
  - BRONCHOPNEUMONIA [None]
